FAERS Safety Report 10051403 (Version 1)
Quarter: 2014Q2

REPORT INFORMATION
  Report Type: Spontaneous
  Country: US (occurrence: US)
  Receive Date: 20140401
  Receipt Date: 20140401
  Transmission Date: 20141212
  Serious: No
  Sender: FDA-Public Use
  Company Number: US-PFIZER INC-2014090151

PATIENT
  Age: 20 Year
  Sex: Male
  Weight: 30.39 kg

DRUGS (3)
  1. ADVIL PM [Suspect]
     Indication: INSOMNIA
     Dosage: 400 MG (TWO TABLETS OF 200MG), UNK
     Dates: start: 201403
  2. LORTAB [Interacting]
     Indication: PAIN
     Dosage: 5 MG, THREE TIMES A DAY (AT EVERY 8 HOURS)
     Dates: start: 201403
  3. LORTAB [Interacting]
     Indication: SURGERY

REACTIONS (2)
  - Drug interaction [Unknown]
  - Somnolence [Unknown]
